FAERS Safety Report 24538669 (Version 1)
Quarter: 2024Q4

REPORT INFORMATION
  Report Type: Spontaneous
  Country: IT (occurrence: IT)
  Receive Date: 20241023
  Receipt Date: 20241023
  Transmission Date: 20250115
  Serious: Yes (Hospitalization, Other)
  Sender: SANDOZ
  Company Number: IT-SHIRE-IT201929710

PATIENT
  Age: 40 Year
  Sex: Male

DRUGS (3)
  1. MESALAMINE [Suspect]
     Active Substance: MESALAMINE
     Indication: Product used for unknown indication
     Dosage: 6 DF, QD (2 DOSAGE FORM, 3X/DAY:TID)
     Route: 065
     Dates: start: 201302
  2. ADALIMUMAB [Concomitant]
     Active Substance: ADALIMUMAB
     Indication: Product used for unknown indication
     Dosage: UNK
     Route: 065
  3. ENTYVIO [Concomitant]
     Active Substance: VEDOLIZUMAB
     Indication: Crohn^s disease
     Dosage: UNK
     Route: 065

REACTIONS (3)
  - Azotaemia [Recovering/Resolving]
  - Blood creatinine increased [Recovering/Resolving]
  - Gravitational oedema [Unknown]

NARRATIVE: CASE EVENT DATE: 20190801
